FAERS Safety Report 8758028 (Version 1)
Quarter: 2012Q4

REPORT INFORMATION
  Report Type: 
  Country: US (occurrence: US)
  Receive Date: 20120828
  Receipt Date: 20120828
  Transmission Date: 20130627
  Serious: Yes (Other)
  Sender: FDA-Public Use
  Company Number: US-PFIZER INC-2012208130

PATIENT
  Sex: Female

DRUGS (1)
  1. LYRICA [Suspect]
     Dosage: 150 mg, 2x/day
     Route: 048
     Dates: end: 20120816

REACTIONS (4)
  - Withdrawal syndrome [Unknown]
  - Suicidal ideation [Unknown]
  - Pain [Unknown]
  - Feeling abnormal [Unknown]
